FAERS Safety Report 6356867-3 (Version None)
Quarter: 2009Q3

REPORT INFORMATION
  Report Type: 
  Country: None (occurrence: None)
  Receive Date: 20090915
  Receipt Date: 20090904
  Transmission Date: 20100115
  Serious: Yes (Other)
  Sender: FDA-Public Use
  Company Number: GB-PFIZER INC-2009243203

PATIENT
  Age: 60 Year

DRUGS (1)
  1. CHAMPIX [Suspect]
     Dosage: UNK
     Dates: start: 20090716

REACTIONS (3)
  - HAEMOPTYSIS [None]
  - HAEMORRHAGE [None]
  - HEPATIC ENZYME ABNORMAL [None]
